FAERS Safety Report 23585993 (Version 1)
Quarter: 2024Q1

REPORT INFORMATION
  Report Type: Report from Study
  Country: US (occurrence: US)
  Receive Date: 20240301
  Receipt Date: 20240301
  Transmission Date: 20240410
  Serious: Yes (Death, Hospitalization)
  Sender: FDA-Public Use
  Company Number: US-ABBVIE-5659114

PATIENT
  Sex: Male

DRUGS (3)
  1. SKYRIZI [Suspect]
     Active Substance: RISANKIZUMAB-RZAA
     Indication: Psoriasis
     Dosage: WEEK 0 FORM STRENGTH: 150 MG
     Route: 058
     Dates: start: 20230501, end: 20230501
  2. SKYRIZI [Suspect]
     Active Substance: RISANKIZUMAB-RZAA
     Dosage: FORM STRENGTH: 150 MG
     Route: 058
     Dates: start: 2023, end: 2023
  3. SKYRIZI [Suspect]
     Active Substance: RISANKIZUMAB-RZAA
     Dosage: WEEK 4 FORM STRENGTH: 150 MG
     Route: 058
     Dates: start: 20230530, end: 20230530

REACTIONS (2)
  - Pneumonia [Fatal]
  - Influenza [Fatal]

NARRATIVE: CASE EVENT DATE: 20230101
